FAERS Safety Report 6547276-2 (Version None)
Quarter: 2010Q1

REPORT INFORMATION
  Report Type: 
  Country: None (occurrence: None)
  Receive Date: 20100122
  Receipt Date: 20100112
  Transmission Date: 20100710
  Serious: Yes (Hospitalization)
  Sender: FDA-Public Use
  Company Number: US-ELI_LILLY_AND_COMPANY-US201001002965

PATIENT
  Sex: Male

DRUGS (5)
  1. EFFIENT [Suspect]
     Indication: ACUTE MYOCARDIAL INFARCTION
     Dosage: 60 MG, UNK
     Route: 048
     Dates: start: 20100109, end: 20101009
  2. EFFIENT [Suspect]
     Dosage: 10 MG, UNK
     Route: 048
     Dates: start: 20100110
  3. REOPRO [Concomitant]
     Indication: ACUTE MYOCARDIAL INFARCTION
     Route: 042
     Dates: start: 20100109, end: 20100109
  4. HEPARIN [Concomitant]
  5. ASPIRIN [Concomitant]

REACTIONS (2)
  - HAEMATOCRIT DECREASED [None]
  - HAEMORRHAGE [None]
